FAERS Safety Report 9562530 (Version 1)
Quarter: 2013Q3

REPORT INFORMATION
  Report Type: Spontaneous
  Country: US (occurrence: None)
  Receive Date: 20130926
  Receipt Date: 20130926
  Transmission Date: 20140515
  Serious: No
  Sender: FDA-Public Use
  Company Number: None

PATIENT
  Age: 36 Year
  Sex: Male
  Weight: 104.33 kg

DRUGS (2)
  1. LEVOTHYROXINE [Suspect]
     Indication: HYPOTHYROIDISM
     Dosage: 88, 150, 175 QD, ORAL
     Route: 048
     Dates: start: 20021003, end: 20110706
  2. LEVOTHYROXINE [Suspect]
     Dosage: 88, 150, 175 QD, ORAL
     Route: 048
     Dates: start: 20021003, end: 20110706

REACTIONS (1)
  - Drug ineffective [None]
